FAERS Safety Report 22160531 (Version 1)
Quarter: 2023Q1

REPORT INFORMATION
  Report Type: Spontaneous
  Country: IT (occurrence: None)
  Receive Date: 20230331
  Receipt Date: 20230331
  Transmission Date: 20230418
  Serious: Yes (Other)
  Sender: FDA-Public Use
  Company Number: None

PATIENT
  Age: 80 Year
  Sex: Female

DRUGS (14)
  1. AVASTIN [Suspect]
     Active Substance: BEVACIZUMAB
     Indication: Neovascular age-related macular degeneration
     Dosage: 0,5 ML 25 MG/ML
     Route: 065
     Dates: start: 20221006, end: 20221006
  2. AVASTIN [Suspect]
     Active Substance: BEVACIZUMAB
     Dosage: 25 MG/ML
     Route: 065
     Dates: start: 20230119, end: 20230119
  3. AVASTIN [Suspect]
     Active Substance: BEVACIZUMAB
     Dosage: 25 MG/ML
     Route: 065
     Dates: start: 20221117, end: 20221117
  4. LASIX [Concomitant]
     Active Substance: FUROSEMIDE
     Indication: Hypertension
     Route: 065
  5. ASPIRIN [Concomitant]
     Active Substance: ASPIRIN
     Indication: Thrombosis prophylaxis
  6. ACTONEL [Concomitant]
     Active Substance: RISEDRONATE SODIUM
  7. CALCIFEDIOL [Concomitant]
     Active Substance: CALCIFEDIOL
  8. ALLOPURINOL [Concomitant]
     Active Substance: ALLOPURINOL
     Indication: Gout
  9. PANTOPAN [Concomitant]
     Active Substance: PANTOPRAZOLE SODIUM
     Indication: Prophylaxis against gastrointestinal ulcer
  10. FOLIFILL [Concomitant]
  11. BISOPROLOL FUMARATE\PERINDOPRIL ARGININE [Concomitant]
     Active Substance: BISOPROLOL FUMARATE\PERINDOPRIL ARGININE
     Indication: Hypertension
  12. LUVION (ITALY) [Concomitant]
     Indication: Hypertension
  13. BARNIDIPINE HYDROCHLORIDE [Concomitant]
     Active Substance: BARNIDIPINE HYDROCHLORIDE
     Indication: Hypertension
  14. OLMESARTAN MEDOXOMIL [Concomitant]
     Active Substance: OLMESARTAN MEDOXOMIL
     Indication: Hypertension

REACTIONS (6)
  - Visual acuity reduced [Not Recovered/Not Resolved]
  - Subretinal fluid [Not Recovered/Not Resolved]
  - Detachment of macular retinal pigment epithelium [Not Recovered/Not Resolved]
  - Therapeutic product effect decreased [Not Recovered/Not Resolved]
  - Retinal oedema [Not Recovered/Not Resolved]
  - Condition aggravated [Not Recovered/Not Resolved]

NARRATIVE: CASE EVENT DATE: 20230314
